FAERS Safety Report 4576379-7 (Version None)
Quarter: 2005Q1

REPORT INFORMATION
  Report Type: 
  Country: None (occurrence: None)
  Receive Date: 20050119
  Receipt Date: 20040707
  Transmission Date: 20050727
  Serious: Yes (Other)
  Sender: FDA-Public Use
  Company Number: A03200402296

PATIENT
  Age: 77 Year
  Sex: Female
  Weight: 65.318 kg

DRUGS (12)
  1. PLAVIX [Suspect]
     Indication: TRANSIENT ISCHAEMIC ATTACK
     Dosage: 75 MG QD - ORAL
     Route: 048
     Dates: start: 20040618, end: 20041014
  2. ESOMEPRAZOLE [Concomitant]
  3. METOPROLOL SUCCINATE [Concomitant]
  4. GLUCOSAMINE [Concomitant]
  5. BEE POLLEN/ROYAL JELLY [Concomitant]
  6. CALCIUM CITRATE [Concomitant]
  7. VITAMIN C [Concomitant]
  8. ACETYLSALICYLIC ACID [Concomitant]
  9. RALOXIFENE HCL [Concomitant]
  10. VITAMIN B COMPLEX CAP [Concomitant]
  11. OXYBUTYNIN [Concomitant]
  12. VITAMINS [Concomitant]

REACTIONS (4)
  - ANOREXIA [None]
  - CHEST WALL PAIN [None]
  - HALLUCINATION [None]
  - SLEEP DISORDER [None]
